FAERS Safety Report 5078508-8 (Version None)
Quarter: 2006Q3

REPORT INFORMATION
  Report Type: 
  Country: None (occurrence: None)
  Receive Date: 20060808
  Receipt Date: 20060802
  Transmission Date: 20061208
  Serious: Yes (Hospitalization)
  Sender: FDA-Public Use
  Company Number: E2090-00057-SPO-US

PATIENT
  Age: 4 Year
  Sex: Male

DRUGS (1)
  1. ZONEGRAN [Suspect]
     Indication: PETIT MAL EPILEPSY
     Dosage: ORAL
     Route: 048

REACTIONS (3)
  - ABDOMINAL DISTENSION [None]
  - ABDOMINAL PAIN [None]
  - IRRITABILITY [None]
